FAERS Safety Report 13567614 (Version 2)
Quarter: 2018Q2

REPORT INFORMATION
  Report Type: Spontaneous
  Country: US (occurrence: US)
  Receive Date: 20170522
  Receipt Date: 20180606
  Transmission Date: 20180711
  Serious: No
  Sender: FDA-Public Use
  Company Number: US-TEVA-671424USA

PATIENT
  Sex: Female
  Weight: 50.85 kg

DRUGS (1)
  1. JUNEL [Suspect]
     Active Substance: ETHINYL ESTRADIOL\NORETHINDRONE ACETATE
     Indication: MENORRHAGIA
     Dosage: 1.5 MG/30 MCG
     Route: 065
     Dates: start: 2011

REACTIONS (4)
  - Product use in unapproved indication [Not Recovered/Not Resolved]
  - Menorrhagia [Recovered/Resolved]
  - Menstruation irregular [Unknown]
  - Dysmenorrhoea [Recovered/Resolved]
